FAERS Safety Report 6369210-0 (Version None)
Quarter: 2009Q3

REPORT INFORMATION
  Report Type: 
  Country: None (occurrence: None)
  Receive Date: 20090916
  Receipt Date: 20090908
  Transmission Date: 20100115
  Serious: Yes (Life-Threatening, Hospitalization)
  Sender: FDA-Public Use
  Company Number: ADR20352009

PATIENT
  Age: 59 Year
  Sex: Female

DRUGS (5)
  1. RISPERDONE [Suspect]
     Indication: MENTAL DISORDER
     Dosage: 2MG ORAL
     Route: 048
  2. DIAZEPAM [Concomitant]
  3. DOTHIEPIN HYDROCHLORIDE [Concomitant]
  4. PROPIVERINE [Concomitant]
  5. SIMVASTATIN [Concomitant]

REACTIONS (4)
  - C-REACTIVE PROTEIN INCREASED [None]
  - ERYTHEMA AB IGNE [None]
  - HYPOTHERMIA [None]
  - WHITE BLOOD CELLS URINE POSITIVE [None]
